FAERS Safety Report 16781711 (Version 2)
Quarter: 2019Q3

REPORT INFORMATION
  Report Type: Spontaneous
  Country: AR (occurrence: AR)
  Receive Date: 20190906
  Receipt Date: 20190926
  Transmission Date: 20191005
  Serious: Yes (Hospitalization, Other)
  Sender: FDA-Public Use
  Company Number: AR-ROCHE-2399152

PATIENT
  Sex: Female

DRUGS (5)
  1. PROPANOLOL [PROPRANOLOL] [Concomitant]
     Active Substance: PROPRANOLOL HYDROCHLORIDE
     Indication: TREMOR
     Route: 065
  2. PARACETAMOL [Concomitant]
     Active Substance: ACETAMINOPHEN
     Route: 048
  3. DIPHENHYDRAMINE. [Concomitant]
     Active Substance: DIPHENHYDRAMINE
     Route: 065
  4. OCREVUS [Suspect]
     Active Substance: OCRELIZUMAB
     Indication: PRIMARY PROGRESSIVE MULTIPLE SCLEROSIS
     Route: 042
  5. METHYLPREDNISOLONE. [Concomitant]
     Active Substance: METHYLPREDNISOLONE
     Route: 065

REACTIONS (11)
  - Laryngeal oedema [Unknown]
  - Throat irritation [Recovered/Resolved]
  - Eyelid oedema [Unknown]
  - Cardiac arrest [Unknown]
  - Nasal pruritus [Recovered/Resolved]
  - Pulse absent [Unknown]
  - Sensory disturbance [Unknown]
  - Coronary artery occlusion [Unknown]
  - Dysphonia [Unknown]
  - Erythema [Unknown]
  - Chest pain [Unknown]
